FAERS Safety Report 4515930-X (Version None)
Quarter: 2004Q4

REPORT INFORMATION
  Report Type: 
  Country: None (occurrence: None)
  Receive Date: 20041130
  Receipt Date: 20041130
  Transmission Date: 20050328
  Serious: No
  Sender: FDA-Public Use
  Company Number: None

PATIENT
  Sex: Male

DRUGS (1)
  1. CLINIMIX 4.25/5 SULFITE FREE IN DEXTROSE 5% [Suspect]
     Indication: SMALL INTESTINAL OBSTRUCTION
     Dosage: 1 LITER 150 ML/HR IV
     Route: 042
     Dates: start: 20041105, end: 20041105

REACTIONS (2)
  - BLOOD POTASSIUM INCREASED [None]
  - MEDICATION ERROR [None]
